FAERS Safety Report 10032138 (Version 1)
Quarter: 2014Q1

REPORT INFORMATION
  Report Type: Spontaneous
  Country: US (occurrence: US)
  Receive Date: 20140324
  Receipt Date: 20140324
  Transmission Date: 20141002
  Serious: Yes (Hospitalization, Other)
  Sender: FDA-Public Use
  Company Number: US-GILEAD-2014-0097458

PATIENT
  Sex: Female

DRUGS (3)
  1. LETAIRIS [Suspect]
     Indication: PULMONARY HYPERTENSION
     Dosage: 10 MG, QD
     Route: 065
     Dates: start: 20120625
  2. TYVASO [Concomitant]
     Indication: PULMONARY HYPERTENSION
     Dates: start: 20120110
  3. SILDENAFIL [Concomitant]
     Indication: PULMONARY HYPERTENSION
     Dates: start: 20120625

REACTIONS (1)
  - Malaise [Unknown]
